FAERS Safety Report 12926586 (Version 2)
Quarter: 2016Q4

REPORT INFORMATION
  Report Type: Report from Study
  Country: US (occurrence: US)
  Receive Date: 20161109
  Receipt Date: 20161221
  Transmission Date: 20170207
  Serious: Yes (Death)
  Sender: FDA-Public Use
  Company Number: US-BIOGEN-2016BI00314180

PATIENT
  Sex: Male

DRUGS (1)
  1. PLEGRIDY [Suspect]
     Active Substance: PEGINTERFERON BETA-1A
     Indication: MULTIPLE SCLEROSIS
     Route: 058
     Dates: start: 201508, end: 201611

REACTIONS (1)
  - Death [Fatal]
